FAERS Safety Report 14980864 (Version 1)
Quarter: 2018Q2

REPORT INFORMATION
  Report Type: Spontaneous
  Country: CL (occurrence: CL)
  Receive Date: 20180606
  Receipt Date: 20180606
  Transmission Date: 20180711
  Serious: Yes (Other)
  Sender: FDA-Public Use
  Company Number: CL-PFIZER INC-2018224441

PATIENT
  Age: 83 Year
  Sex: Female

DRUGS (4)
  1. NITEXOL [Concomitant]
     Dosage: 30 MG, 1X/DAY (10:30 AM)
     Route: 048
     Dates: start: 201803
  2. LYRICA [Suspect]
     Active Substance: PREGABALIN
     Indication: PAIN
     Dosage: 150 MG, 2X/DAY (9 AM AND 9:30 PM)
     Route: 048
     Dates: start: 201803
  3. PRO-MERPAL [Concomitant]
     Indication: PRURITUS
     Dosage: 140 MG, 1X/DAY (4 PM)
     Route: 048
     Dates: start: 201803
  4. DEGRALER PLUSE [Concomitant]
     Indication: PRURITUS
     Dosage: 5 MG, AS NEEDED
     Route: 048
     Dates: start: 201803

REACTIONS (2)
  - Sleep talking [Unknown]
  - Seizure [Unknown]

NARRATIVE: CASE EVENT DATE: 201805
